FAERS Safety Report 13191824 (Version 1)
Quarter: 2017Q1

REPORT INFORMATION
  Report Type: Spontaneous
  Country: US (occurrence: US)
  Receive Date: 20170206
  Receipt Date: 20170206
  Transmission Date: 20170428
  Serious: Yes (Disabling)
  Sender: FDA-Public Use
  Company Number: None

PATIENT
  Age: 27 Year
  Sex: Male
  Weight: 85.5 kg

DRUGS (5)
  1. MYORISAN [Suspect]
     Active Substance: ISOTRETINOIN
     Indication: ACNE
     Dosage: QUANTITY:1 CAPSULE(S);OTHER FREQUENCY:VARIED 1-2 A DAY;?
     Route: 048
     Dates: start: 20150808, end: 20160208
  2. PYCNOGENOL [Concomitant]
     Active Substance: DIETARY SUPPLEMENT
  3. L-ARGININE [Concomitant]
     Active Substance: ARGININE
  4. FISH OIL [Concomitant]
     Active Substance: FISH OIL
  5. MULTIVITAMIN [Concomitant]
     Active Substance: VITAMINS

REACTIONS (2)
  - Erectile dysfunction [None]
  - Loss of libido [None]

NARRATIVE: CASE EVENT DATE: 20160101
